FAERS Safety Report 16813774 (Version 1)
Quarter: 2019Q3

REPORT INFORMATION
  Report Type: Spontaneous
  Country: US (occurrence: US)
  Receive Date: 20190917
  Receipt Date: 20190917
  Transmission Date: 20191005
  Serious: Yes (Death, Other)
  Sender: FDA-Public Use
  Company Number: US-BRISTOL-MYERS SQUIBB COMPANY-BMS-2019-089654

PATIENT
  Sex: Male

DRUGS (2)
  1. OPDIVO [Suspect]
     Active Substance: NIVOLUMAB
     Indication: NEUROENDOCRINE TUMOUR
     Dosage: 341.1 MILLIGRAM, Q3WK
     Route: 042
  2. YERVOY [Suspect]
     Active Substance: IPILIMUMAB
     Indication: NEUROENDOCRINE TUMOUR
     Dosage: 113.7 MILLIGRAM, Q3WK
     Route: 042

REACTIONS (2)
  - Death [Fatal]
  - Intentional product use issue [Unknown]
